FAERS Safety Report 23272275 (Version 1)
Quarter: 2023Q4

REPORT INFORMATION
  Report Type: Spontaneous
  Country: US (occurrence: None)
  Receive Date: 20231206
  Receipt Date: 20231206
  Transmission Date: 20240109
  Serious: Yes (Other)
  Sender: FDA-Public Use
  Company Number: None

PATIENT
  Age: 19 Year
  Sex: Male
  Weight: 63 kg

DRUGS (3)
  1. GENTAMICIN [Suspect]
     Active Substance: GENTAMICIN
     Dosage: 30 ML TWICE A DAY BLADDER IRRIGATION
     Route: 050
  2. CEFEPIME [Concomitant]
     Dates: start: 20231017, end: 20231025
  3. ERTAPENEM [Concomitant]
     Dates: start: 20231118, end: 20231128

REACTIONS (2)
  - Product preparation error [None]
  - Product dispensing error [None]

NARRATIVE: CASE EVENT DATE: 20231017
